FAERS Safety Report 13264268 (Version 1)
Quarter: 2017Q1

REPORT INFORMATION
  Report Type: Spontaneous
  Country: US (occurrence: US)
  Receive Date: 20170223
  Receipt Date: 20170223
  Transmission Date: 20170428
  Serious: Yes (Other)
  Sender: FDA-Public Use
  Company Number: None

PATIENT
  Age: 63 Year
  Sex: Female
  Weight: 60.84 kg

DRUGS (9)
  1. COD LIVER OIL [Concomitant]
     Active Substance: COD LIVER OIL
  2. GARLIC. [Concomitant]
     Active Substance: GARLIC
  3. METFORMIN [Concomitant]
     Active Substance: METFORMIN HYDROCHLORIDE
  4. SOTALOL. [Concomitant]
     Active Substance: SOTALOL
  5. XANAX [Concomitant]
     Active Substance: ALPRAZOLAM
  6. LOSARTAN-HCTZ [Concomitant]
     Active Substance: HYDROCHLOROTHIAZIDE\LOSARTAN
  7. TYLENOL [Concomitant]
     Active Substance: ACETAMINOPHEN
  8. PROBIOTIC [Concomitant]
     Active Substance: PROBIOTICS NOS
  9. CLONIDINE HCL [Suspect]
     Active Substance: CLONIDINE HYDROCHLORIDE
     Indication: BLOOD PRESSURE INCREASED
     Dosage: 1 TAB TWICE DAILY, THEN 1 DAILY, LATER AS NEEDED, MOUTH
     Route: 048
     Dates: start: 20160101, end: 20161128

REACTIONS (2)
  - Hair growth abnormal [None]
  - Alopecia [None]

NARRATIVE: CASE EVENT DATE: 20161025
